FAERS Safety Report 10612336 (Version 1)
Quarter: 2014Q4

REPORT INFORMATION
  Report Type: Spontaneous
  Country: IN (occurrence: IN)
  Receive Date: 20141127
  Receipt Date: 20141127
  Transmission Date: 20150529
  Serious: Yes (Other)
  Sender: FDA-Public Use
  Company Number: IN-AUROBINDO-AUR-APL-2014-12340

PATIENT
  Age: 44 Year
  Sex: Male

DRUGS (5)
  1. ABACAVIR 300 MG [Suspect]
     Active Substance: ABACAVIR
     Indication: HIV INFECTION
  2. ATAZANAVIR W/RITONAVIR [Concomitant]
     Active Substance: ATAZANAVIR\RITONAVIR
     Indication: CD4 LYMPHOCYTES DECREASED
     Dosage: UNK
     Route: 065
     Dates: start: 20140205
  3. COTRIMOXAZOLE [Suspect]
     Active Substance: SULFAMETHOXAZOLE\TRIMETHOPRIM
     Indication: PROPHYLAXIS
     Dosage: 160MG/400MG
     Route: 065
  4. ABACAVIR 300 MG [Suspect]
     Active Substance: ABACAVIR
     Indication: CD4 LYMPHOCYTES DECREASED
     Dosage: 300 MG, TWO TIMES A DAY
     Route: 065
     Dates: start: 20140205
  5. ATAZANAVIR W/RITONAVIR [Concomitant]
     Active Substance: ATAZANAVIR\RITONAVIR
     Indication: HIV INFECTION

REACTIONS (13)
  - Headache [Unknown]
  - Rash maculo-papular [Recovered/Resolved]
  - Blood count abnormal [Unknown]
  - Vomiting [Unknown]
  - Hypersensitivity [Recovered/Resolved]
  - Abdominal pain [Unknown]
  - Pruritus [Unknown]
  - Decreased appetite [Unknown]
  - Pancytopenia [Unknown]
  - Skin lesion [Recovered/Resolved]
  - Drug intolerance [Unknown]
  - Liver function test abnormal [Recovered/Resolved]
  - Fatigue [Unknown]
